FAERS Safety Report 22589840 (Version 1)
Quarter: 2023Q2

REPORT INFORMATION
  Report Type: Report from Study
  Country: DO (occurrence: DO)
  Receive Date: 20230612
  Receipt Date: 20230612
  Transmission Date: 20230721
  Serious: Yes (Other)
  Sender: FDA-Public Use
  Company Number: DO-MYLANLABS-2023M1061960

PATIENT
  Sex: Female
  Weight: 63.04 kg

DRUGS (1)
  1. NORVASC [Suspect]
     Active Substance: AMLODIPINE BESYLATE
     Indication: Mean arterial pressure
     Dosage: 10 MILLIGRAM, QD (1 TABLET DAILY)
     Route: 048
     Dates: start: 2020

REACTIONS (1)
  - Dementia Alzheimer^s type [Not Recovered/Not Resolved]
